FAERS Safety Report 8604209-2 (Version None)
Quarter: 2012Q3

REPORT INFORMATION
  Report Type: 
  Country: None (occurrence: None)
  Receive Date: 20120820
  Receipt Date: 20120816
  Transmission Date: 20120928
  Serious: No
  Sender: FDA-Public Use
  Company Number: US-PFIZER INC-2012159479

PATIENT
  Age: 80 Year
  Sex: Male

DRUGS (1)
  1. INLYTA [Suspect]
     Indication: RENAL CANCER
     Dosage: 5 MG, 2X/DAY
     Dates: start: 20120301

REACTIONS (12)
  - APHONIA [None]
  - FALL [None]
  - INCREASED TENDENCY TO BRUISE [None]
  - DECREASED APPETITE [None]
  - DIARRHOEA [None]
  - SKIN ATROPHY [None]
  - FATIGUE [None]
  - DYSPHONIA [None]
  - IMPAIRED HEALING [None]
  - SKIN EXFOLIATION [None]
  - SKIN DISCOLOURATION [None]
  - GLOSSODYNIA [None]
